FAERS Safety Report 15118827 (Version 1)
Quarter: 2018Q3

REPORT INFORMATION
  Report Type: Spontaneous
  Country: US (occurrence: US)
  Receive Date: 20180709
  Receipt Date: 20180709
  Transmission Date: 20181010
  Serious: No
  Sender: FDA-Public Use
  Company Number: US-TEVA-2018-US-920501

PATIENT
  Age: 84 Year
  Sex: Male

DRUGS (1)
  1. QVAR REDIHALER [Suspect]
     Active Substance: BECLOMETHASONE DIPROPIONATE
     Indication: PNEUMONIA
     Dosage: 2 PUFFS TWICE DAILY
     Route: 065
     Dates: start: 201806

REACTIONS (2)
  - Malaise [Unknown]
  - Product use in unapproved indication [Unknown]
